FAERS Safety Report 10669470 (Version 1)
Quarter: 2014Q4

REPORT INFORMATION
  Report Type: Spontaneous
  Country: US (occurrence: US)
  Receive Date: 20141222
  Receipt Date: 20141222
  Transmission Date: 20150529
  Serious: No
  Sender: FDA-Public Use
  Company Number: US-SA-2014SA151071

PATIENT
  Age: 59 Year
  Sex: Female

DRUGS (1)
  1. AUBAGIO [Suspect]
     Active Substance: TERIFLUNOMIDE
     Indication: RELAPSING-REMITTING MULTIPLE SCLEROSIS
     Route: 065
     Dates: start: 201406

REACTIONS (6)
  - Weight decreased [Unknown]
  - Pain in extremity [Unknown]
  - Diarrhoea [Unknown]
  - Hypoaesthesia [Unknown]
  - Sinusitis [Unknown]
  - Paraesthesia [Unknown]
